FAERS Safety Report 19066282 (Version 2)
Quarter: 2021Q2

REPORT INFORMATION
  Report Type: Spontaneous
  Country: GB (occurrence: GB)
  Receive Date: 20210328
  Receipt Date: 20210402
  Transmission Date: 20210717
  Serious: Yes (Hospitalization, Other)
  Sender: FDA-Public Use
  Company Number: GB-ACCORD-219716

PATIENT
  Age: 38 Month
  Sex: Male

DRUGS (2)
  1. TOPIRAMATE. [Suspect]
     Active Substance: TOPIRAMATE
     Indication: PARTIAL SEIZURES
  2. TOPIRAMATE. [Suspect]
     Active Substance: TOPIRAMATE
     Indication: ATONIC SEIZURES

REACTIONS (2)
  - Nephrolithiasis [Unknown]
  - Gastrointestinal disorder [Unknown]
